FAERS Safety Report 7678804-1 (Version None)
Quarter: 2011Q3

REPORT INFORMATION
  Report Type: 
  Country: None (occurrence: None)
  Receive Date: 20110811
  Receipt Date: 20110802
  Transmission Date: 20111222
  Serious: Yes (Hospitalization, Other)
  Sender: FDA-Public Use
  Company Number: US-ASTRAZENECA-2011SE37290

PATIENT
  Age: 49 Year
  Sex: Female

DRUGS (2)
  1. PRILOSEC [Suspect]
     Route: 048
  2. NEXIUM [Suspect]
     Route: 048

REACTIONS (10)
  - GASTRIC DISORDER [None]
  - INCORRECT DOSE ADMINISTERED [None]
  - OBSTRUCTION GASTRIC [None]
  - HEARING IMPAIRED [None]
  - DRUG DOSE OMISSION [None]
  - MASTECTOMY [None]
  - GAIT DISTURBANCE [None]
  - MALAISE [None]
  - WRONG DRUG ADMINISTERED [None]
  - BREAST CANCER [None]
